FAERS Safety Report 19893322 (Version 1)
Quarter: 2021Q3

REPORT INFORMATION
  Report Type: Other
  Country: US (occurrence: US)
  Receive Date: 20210929
  Receipt Date: 20210929
  Transmission Date: 20211014
  Serious: Yes (Other)
  Sender: FDA-Public Use
  Company Number: US-INTERCEPT-PM2021002641

PATIENT
  Age: 58 Year
  Sex: Female

DRUGS (3)
  1. OCALIVA [Suspect]
     Active Substance: OBETICHOLIC ACID
     Indication: PRIMARY BILIARY CHOLANGITIS
     Dosage: 5 MILLIGRAM, QD
     Route: 048
     Dates: start: 20160613
  2. URSO [Concomitant]
     Active Substance: URSODIOL
     Dosage: UNK
  3. OCALIVA [Suspect]
     Active Substance: OBETICHOLIC ACID
     Dosage: 10 MILLIGRAM, QD
     Route: 048
     Dates: start: 20161219, end: 20210726

REACTIONS (7)
  - Ascites [Unknown]
  - Hepatic steatosis [Unknown]
  - Autoimmune cholangitis [Unknown]
  - Cholelithiasis [Unknown]
  - Splenomegaly [Unknown]
  - Hepatic fibrosis [Unknown]
  - Hepatic cirrhosis [Unknown]

NARRATIVE: CASE EVENT DATE: 2018
